FAERS Safety Report 6695859-1 (Version None)
Quarter: 2010Q2

REPORT INFORMATION
  Report Type: 
  Country: None (occurrence: None)
  Receive Date: 20100426
  Receipt Date: 20090507
  Transmission Date: 20101027
  Serious: No
  Sender: FDA-Public Use
  Company Number: A0783010A

PATIENT
  Age: 51 Year
  Sex: Female

DRUGS (8)
  1. ZOFRAN [Suspect]
     Indication: NAUSEA
     Route: 042
     Dates: start: 20090430
  2. ATENOLOL [Concomitant]
  3. FIORICET [Concomitant]
  4. CLONAZEPAM [Concomitant]
  5. CIPRO [Concomitant]
  6. SUDAFED 12 HOUR [Concomitant]
  7. PHENERGAN [Concomitant]
  8. ZANTAC [Concomitant]

REACTIONS (1)
  - NAUSEA [None]
